FAERS Safety Report 19814979 (Version 1)
Quarter: 2021Q3

REPORT INFORMATION
  Report Type: Spontaneous
  Country: US (occurrence: US)
  Receive Date: 20210909
  Receipt Date: 20210909
  Transmission Date: 20211014
  Serious: No
  Sender: FDA-Public Use
  Company Number: US-SUNOVION-2021SUN003193

PATIENT
  Age: 55 Year
  Sex: Male

DRUGS (3)
  1. LONHALA MAGNAIR [Suspect]
     Active Substance: GLYCOPYRROLATE
     Dosage: 25 ?G
     Route: 055
  2. ALBUTEROL SULFATE;IPRATROPIUM BROMIDE [Concomitant]
  3. BROVANA [Concomitant]
     Active Substance: ARFORMOTEROL TARTRATE
     Dosage: UNK
     Route: 055

REACTIONS (4)
  - Product taste abnormal [Unknown]
  - Dyspnoea [Unknown]
  - Cough [Unknown]
  - Visual impairment [Unknown]
